FAERS Safety Report 6314660-1 (Version None)
Quarter: 2009Q3

REPORT INFORMATION
  Report Type: 
  Country: None (occurrence: None)
  Receive Date: 20090817
  Receipt Date: 20090817
  Transmission Date: 20100115
  Serious: No
  Sender: FDA-Public Use
  Company Number: None

PATIENT
  Age: 47 Year
  Sex: Female
  Weight: 65.7716 kg

DRUGS (1)
  1. VITAMIN E [Suspect]
     Indication: THERAPEUTIC SKIN CARE TOPICAL
     Dosage: 1 CAPSULE OPENED APPLIED TO FACE OTHER
     Route: 050
     Dates: start: 20090811, end: 20090811

REACTIONS (6)
  - BLISTER [None]
  - BURNING SENSATION [None]
  - ERYTHEMA [None]
  - EYE SWELLING [None]
  - LIP SWELLING [None]
  - SWELLING FACE [None]
